FAERS Safety Report 23860936 (Version 2)
Quarter: 2024Q2

REPORT INFORMATION
  Report Type: Spontaneous
  Country: BR (occurrence: BR)
  Receive Date: 20240516
  Receipt Date: 20240620
  Transmission Date: 20240716
  Serious: Yes (Other)
  Sender: FDA-Public Use
  Company Number: BR-GSK-BR2021AMR256477

PATIENT

DRUGS (1)
  1. NUCALA [Suspect]
     Active Substance: MEPOLIZUMAB
     Indication: Asthma
     Dosage: 100 MG/ML
     Dates: start: 20200730

REACTIONS (7)
  - Cholecystectomy [Recovered/Resolved]
  - Hernia repair [Recovered/Resolved]
  - Labyrinthitis [Recovered/Resolved]
  - Ear disorder [Not Recovered/Not Resolved]
  - Inappropriate schedule of product administration [Unknown]
  - Product packaging issue [Unknown]
  - Communication disorder [Unknown]

NARRATIVE: CASE EVENT DATE: 20211201
